FAERS Safety Report 15157293 (Version 1)
Quarter: 2018Q3

REPORT INFORMATION
  Report Type: Spontaneous
  Country: BE (occurrence: BE)
  Receive Date: 20180718
  Receipt Date: 20180718
  Transmission Date: 20181010
  Serious: Yes (Other)
  Sender: FDA-Public Use
  Company Number: BE-TEVA-2018-BE-928104

PATIENT
  Age: 41 Year
  Sex: Female

DRUGS (2)
  1. CETIRIZINE [Suspect]
     Active Substance: CETIRIZINE HYDROCHLORIDE
     Route: 065
  2. LEMTRADA [Suspect]
     Active Substance: ALEMTUZUMAB
     Dosage: UNK
     Route: 041
     Dates: start: 201708, end: 201708

REACTIONS (6)
  - Arthralgia [Unknown]
  - Rash [Unknown]
  - Autoimmune arthritis [Unknown]
  - Fatigue [Recovering/Resolving]
  - Exophthalmos [Unknown]
  - Hyperthyroidism [Unknown]
